FAERS Safety Report 7936833-4 (Version None)
Quarter: 2011Q4

REPORT INFORMATION
  Report Type: 
  Country: None (occurrence: None)
  Receive Date: 20111123
  Receipt Date: 20111121
  Transmission Date: 20120403
  Serious: No
  Sender: FDA-Public Use
  Company Number: US-PFIZER INC-2011285650

PATIENT
  Age: 69 Year
  Sex: Female

DRUGS (5)
  1. CADUET [Suspect]
     Indication: BLOOD CHOLESTEROL ABNORMAL
     Dosage: [AMLODIPINE BESYLATE 10MG]/[ATORVASTATIN CALCIUM 20MG] DAILY
     Route: 048
  2. LISINOPRIL [Concomitant]
     Indication: BLOOD PRESSURE ABNORMAL
     Dosage: UNK
  3. GLUCOTROL [Concomitant]
     Indication: DIABETES MELLITUS
     Dosage: UNK
     Route: 048
  4. CADUET [Suspect]
     Indication: BLOOD PRESSURE ABNORMAL
  5. LABETALOL [Concomitant]
     Indication: BLOOD PRESSURE ABNORMAL
     Dosage: UNK

REACTIONS (2)
  - WEIGHT DECREASED [None]
  - DRUG INTOLERANCE [None]
